FAERS Safety Report 23538436 (Version 2)
Quarter: 2024Q1

REPORT INFORMATION
  Report Type: Other
  Country: JP (occurrence: None)
  Receive Date: 20240219
  Receipt Date: 20240304
  Transmission Date: 20240410
  Serious: Yes (Other)
  Sender: FDA-Public Use
  Company Number: JP-ROCHE-3508774

PATIENT
  Age: 56 Year
  Sex: Male

DRUGS (10)
  1. MABTHERA [Suspect]
     Active Substance: RITUXIMAB
     Indication: Lymphocytic infiltration
     Dosage: ON DAY 1
     Route: 041
  2. EPIRUBICIN [Suspect]
     Active Substance: EPIRUBICIN
     Indication: Lymphocytic infiltration
     Dosage: ON DAY 1
     Route: 065
  3. CYCLOPHOSPHAMIDE [Suspect]
     Active Substance: CYCLOPHOSPHAMIDE
     Indication: Lymphocytic infiltration
     Dosage: ON DAY 1
     Route: 065
  4. VINCRISTINE [Suspect]
     Active Substance: VINCRISTINE
     Indication: Lymphocytic infiltration
     Dosage: 2MG/BODY ON DAY 1
     Route: 065
  5. PREDNISOLONE [Suspect]
     Active Substance: PREDNISOLONE
     Indication: Lymphocytic infiltration
     Dosage: 100MG/BODY ON DAY 1 TO DAY 5
     Route: 065
  6. METHOTREXATE [Suspect]
     Active Substance: METHOTREXATE
     Indication: Lymphocytic infiltration
     Dosage: DAY 15
     Route: 065
  7. ETOPOSIDE [Suspect]
     Active Substance: ETOPOSIDE
     Indication: Haematopoietic stem cell mobilisation
     Route: 065
  8. PLERIXAFOR [Suspect]
     Active Substance: PLERIXAFOR
     Indication: Haematopoietic stem cell mobilisation
     Route: 065
  9. THIOTEPA [Suspect]
     Active Substance: THIOTEPA
     Indication: Haematopoietic stem cell mobilisation
     Dosage: DAY -8, -7, -6, -5
     Route: 065
  10. BUSULFAN [Suspect]
     Active Substance: BUSULFAN
     Indication: Haematopoietic stem cell mobilisation
     Dosage: DAY -4, -3
     Route: 065

REACTIONS (1)
  - Febrile neutropenia [Recovered/Resolved]
